FAERS Safety Report 4955569-5 (Version None)
Quarter: 2006Q1

REPORT INFORMATION
  Report Type: 
  Country: None (occurrence: None)
  Receive Date: 20060328
  Receipt Date: 20051013
  Transmission Date: 20060701
  Serious: Yes (Hospitalization)
  Sender: FDA-Public Use
  Company Number: PR-MERCK-0510USA07207

PATIENT
  Age: 54 Year
  Sex: Male
  Weight: 91 kg

DRUGS (7)
  1. VIOXX [Suspect]
     Indication: ARTHRALGIA
     Route: 048
     Dates: start: 20040324, end: 20040426
  2. AVANDIA [Concomitant]
     Route: 065
  3. ECOTRIN [Concomitant]
     Route: 065
  4. ISOSORBIDE [Concomitant]
     Route: 065
  5. PHENOBARBITAL [Concomitant]
     Route: 065
  6. INSULIN HUMAN, ISOPHANE [Concomitant]
     Route: 065
  7. AVALIDE [Concomitant]
     Route: 065

REACTIONS (1)
  - MYOCARDIAL INFARCTION [None]
